FAERS Safety Report 7113391-8 (Version None)
Quarter: 2010Q4

REPORT INFORMATION
  Report Type: 
  Country: None (occurrence: None)
  Receive Date: 20101119
  Receipt Date: 20101111
  Transmission Date: 20110411
  Serious: Yes (Other)
  Sender: FDA-Public Use
  Company Number: PHHY2010JP77145

PATIENT
  Age: 3 Year
  Sex: Male

DRUGS (1)
  1. ZADITEN [Suspect]
     Dosage: UNK
     Route: 048
     Dates: start: 20100401

REACTIONS (1)
  - VASCULAR PURPURA [None]
